FAERS Safety Report 10598606 (Version 1)
Quarter: 2014Q4

REPORT INFORMATION
  Report Type: Spontaneous
  Country: SE (occurrence: SE)
  Receive Date: 20141121
  Receipt Date: 20141121
  Transmission Date: 20150529
  Serious: Yes (Hospitalization)
  Sender: FDA-Public Use
  Company Number: SE-PFIZER INC-2014320299

PATIENT
  Age: 47 Year
  Sex: Female

DRUGS (8)
  1. PROMETHAZINE [Suspect]
     Active Substance: PROMETHAZINE\PROMETHAZINE HYDROCHLORIDE
     Dosage: 50 MG, UNK
     Route: 048
     Dates: start: 20131016, end: 20131016
  2. ZOPICLONE [Suspect]
     Active Substance: ZOPICLONE
     Dosage: 15 MG, UNK
     Route: 048
     Dates: start: 20131016, end: 20131016
  3. ERGENYL [Suspect]
     Active Substance: VALPROIC ACID
     Dosage: 2000 MG, UNK
     Route: 048
     Dates: start: 20131016, end: 20131016
  4. PROVERA [Suspect]
     Active Substance: MEDROXYPROGESTERONE ACETATE
     Dosage: 20 MG, UNK
     Route: 048
     Dates: start: 20131016, end: 20131016
  5. CIPRALEX [Suspect]
     Active Substance: ESCITALOPRAM OXALATE
     Dosage: 20 MG, UNK
     Route: 048
     Dates: start: 20131016, end: 20131016
  6. FLUANXOL ^LUNDBECK^ [Suspect]
     Active Substance: FLUPENTIXOL
     Dosage: 2 MG AND 1000 MG
     Route: 048
     Dates: start: 20131016, end: 20131016
  7. SEROQUEL [Suspect]
     Active Substance: QUETIAPINE FUMARATE
     Dosage: 600 MG, UNK
     Route: 048
     Dates: start: 20131016, end: 20131016
  8. PROPAVAN [Suspect]
     Active Substance: PROPIOMAZINE
     Dosage: 50 MG, UNK
     Route: 048
     Dates: start: 20131016, end: 20131016

REACTIONS (3)
  - Toxicity to various agents [Recovered/Resolved]
  - Alcohol poisoning [None]
  - Suicidal ideation [Recovered/Resolved]

NARRATIVE: CASE EVENT DATE: 20131016
